FAERS Safety Report 23171174 (Version 1)
Quarter: 2023Q4

REPORT INFORMATION
  Report Type: Spontaneous
  Country: JP (occurrence: JP)
  Receive Date: 20231110
  Receipt Date: 20231110
  Transmission Date: 20240109
  Serious: Yes (Hospitalization)
  Sender: FDA-Public Use
  Company Number: JP-MYE-2023M1117548AA

PATIENT
  Age: 84 Year
  Sex: Male

DRUGS (5)
  1. ASPIRIN [Suspect]
     Active Substance: ASPIRIN
     Indication: Angina pectoris
     Route: 065
  2. CARVEDILOL [Suspect]
     Active Substance: CARVEDILOL
     Indication: Product used for unknown indication
     Route: 065
  3. VONOPRAZAN [Suspect]
     Active Substance: VONOPRAZAN
     Indication: Product used for unknown indication
     Route: 065
  4. NIFEDIPINE [Suspect]
     Active Substance: NIFEDIPINE
     Indication: Product used for unknown indication
     Route: 065
  5. ACETAMINOPHEN Powder [Concomitant]
     Indication: Pain
     Dosage: UNK
     Route: 042

REACTIONS (2)
  - Gastrointestinal injury [Recovered/Resolved]
  - Small intestine ulcer [Recovered/Resolved]
